FAERS Safety Report 21411314 (Version 1)
Quarter: 2022Q4

REPORT INFORMATION
  Report Type: Spontaneous
  Country: US (occurrence: None)
  Receive Date: 20221005
  Receipt Date: 20221005
  Transmission Date: 20230112
  Serious: Yes (Death)
  Sender: FDA-Public Use
  Company Number: None

PATIENT
  Age: 26 Year
  Sex: Male
  Weight: 63 kg

DRUGS (1)
  1. VRAYLAR [Suspect]
     Active Substance: CARIPRAZINE
     Indication: Bipolar I disorder

REACTIONS (5)
  - Heart rate decreased [None]
  - Brain injury [None]
  - Oxygen saturation decreased [None]
  - Drug abuse [None]
  - Substance use [None]

NARRATIVE: CASE EVENT DATE: 20220611
